FAERS Safety Report 8047379-X (Version None)
Quarter: 2012Q1

REPORT INFORMATION
  Report Type: 
  Country: None (occurrence: None)
  Receive Date: 20120116
  Receipt Date: 20120111
  Transmission Date: 20120608
  Serious: Yes (Other)
  Sender: FDA-Public Use
  Company Number: US-BAYER-2011-115027

PATIENT
  Age: 22 Year
  Sex: Female
  Weight: 70.295 kg

DRUGS (2)
  1. MIRENA [Suspect]
     Indication: CONTRACEPTION
  2. MIRENA [Suspect]
     Indication: MENORRHAGIA
     Dosage: 20 MCG/24HR, CONT
     Dates: start: 20110920, end: 20111122

REACTIONS (5)
  - VAGINAL HAEMORRHAGE [None]
  - DEVICE BREAKAGE [None]
  - ABDOMINAL PAIN [None]
  - DEVICE DISLOCATION [None]
  - DEVICE EXPULSION [None]
